FAERS Safety Report 8616300-5 (Version None)
Quarter: 2012Q3

REPORT INFORMATION
  Report Type: 
  Country: None (occurrence: None)
  Receive Date: 20120823
  Receipt Date: 20120801
  Transmission Date: 20120928
  Serious: No
  Sender: FDA-Public Use
  Company Number: US-009507513-1208USA001221

PATIENT

DRUGS (1)
  1. JANUMET XR [Suspect]
     Indication: DIABETES MELLITUS
     Dosage: 100/1000
     Route: 048
     Dates: start: 20120601, end: 20120701

REACTIONS (1)
  - BLOOD GLUCOSE INCREASED [None]
